FAERS Safety Report 16086110 (Version 2)
Quarter: 2019Q1

REPORT INFORMATION
  Report Type: Report from Study
  Country: FR (occurrence: FR)
  Receive Date: 20190318
  Receipt Date: 20190325
  Transmission Date: 20190418
  Serious: Yes (Life-Threatening, Hospitalization)
  Sender: FDA-Public Use
  Company Number: FR-PFIZER INC-2019113396

PATIENT
  Age: 70 Year
  Sex: Male
  Weight: 74 kg

DRUGS (16)
  1. CYTARABINE. [Suspect]
     Active Substance: CYTARABINE
     Dosage: 5550 MG, CYCLIC ON DAY1 (CONSOLIDATION COURSE)
     Dates: start: 20190226, end: 20190226
  2. CYTARABINE. [Suspect]
     Active Substance: CYTARABINE
     Dosage: 5550 MG, CYCLIC ON DAY3 (CONSOLIDATION COURSE)
     Dates: start: 20190228, end: 20190228
  3. CYTARABINE. [Suspect]
     Active Substance: CYTARABINE
     Dosage: 5550 MG, CYCLIC ON DAY5 (CONSOLIDATION COURSE)
     Dates: start: 20190302
  4. ALPRAZOLAM. [Concomitant]
     Active Substance: ALPRAZOLAM
     Indication: ANXIETY
     Dosage: 0.25 MG, 3X/DAY IF NEEDED
     Route: 048
     Dates: start: 20190127
  5. GRANOCYTE [Concomitant]
     Active Substance: LENOGRASTIM
     Indication: NEUTROPENIA
     Dosage: 33.6 MILLION IU, DAILY
     Route: 058
     Dates: start: 20190303
  6. TOVIAZ [Concomitant]
     Active Substance: FESOTERODINE FUMARATE
     Indication: HYPERTONIC BLADDER
     Dosage: 4 MG, DAILY
     Route: 048
  7. ZOPICLONE [Concomitant]
     Active Substance: ZOPICLONE
     Indication: INSOMNIA
     Dosage: 7.5 MG, 1X/DAY IF NEEDED
  8. CALCIUM [Concomitant]
     Active Substance: CALCIUM
     Dosage: 1 DF, 2X/DAY (MORNING AND NOON)
  9. TRAMADOL. [Concomitant]
     Active Substance: TRAMADOL
     Indication: PAIN
     Dosage: 50 MG, 4X/DAY (EVERY 6 HOURS) IF NEEDED
     Route: 048
     Dates: start: 20190102
  10. MYLOTARG [Suspect]
     Active Substance: GEMTUZUMAB OZOGAMICIN
     Dosage: 5 MG, CYCLIC ON DAY1 (CONSOLIDATION COURSE)
     Dates: start: 20190226
  11. GRANOCYTE [Concomitant]
     Active Substance: LENOGRASTIM
     Indication: BONE MARROW FAILURE
  12. MYLOTARG [Suspect]
     Active Substance: GEMTUZUMAB OZOGAMICIN
     Indication: ACUTE MYELOID LEUKAEMIA
     Dosage: 3 MG/M2, CYCLIC ON DAY1 (INDUCTION COURSE)
     Dates: start: 20190102, end: 20190102
  13. CYTARABINE. [Suspect]
     Active Substance: CYTARABINE
     Indication: ACUTE MYELOID LEUKAEMIA
     Dosage: 374 MG DAILY CYCLIC FROM D1 TO D7 (200 MG/M2, INDUCTION COURSE)
     Dates: start: 20190102, end: 20190109
  14. PRIMPERAN [Concomitant]
     Active Substance: METOCLOPRAMIDE HYDROCHLORIDE
     Indication: NAUSEA
     Dosage: 10 MG, 3X/DAY IF NEEDED
     Route: 048
     Dates: start: 20190301
  15. MYLOTARG [Suspect]
     Active Substance: GEMTUZUMAB OZOGAMICIN
     Dosage: 3 MG/M2, CYCLIC ON DAY4 (INDUCTION COURSE)
     Dates: start: 20190105, end: 20190105
  16. FRESUBIN [CARBOHYDRATES NOS;FATTY ACIDS NOS;MINERALS NOS;PROTEINS NOS; [Concomitant]
     Indication: ENTERAL NUTRITION
     Dosage: 1500 ML, 2X/DAY (AT 12.00 AM AND 08.00 PM)

REACTIONS (4)
  - Respiratory failure [Recovering/Resolving]
  - Septic shock [Recovering/Resolving]
  - Rectal haemorrhage [Recovering/Resolving]
  - Pyrexia [Recovering/Resolving]

NARRATIVE: CASE EVENT DATE: 20190304
